FAERS Safety Report 7931625-4 (Version None)
Quarter: 2011Q4

REPORT INFORMATION
  Report Type: 
  Country: None (occurrence: None)
  Receive Date: 20111121
  Receipt Date: 20111108
  Transmission Date: 20120403
  Serious: Yes (Other)
  Sender: FDA-Public Use
  Company Number: PHHY2011JP098708

PATIENT
  Sex: Male
  Weight: 66 kg

DRUGS (15)
  1. NIFELAT [Concomitant]
     Indication: HYPERTENSION
     Dosage: 20 MG, UNK
     Route: 048
     Dates: start: 20071029, end: 20080625
  2. BUFFERIN [Concomitant]
     Dosage: 81 MG
     Route: 048
     Dates: start: 20071126
  3. ACTOS [Concomitant]
     Dosage: 30 MG
     Route: 048
     Dates: start: 20090324
  4. METFORMIN HCL [Concomitant]
     Dosage: 750 MG
     Route: 048
     Dates: start: 20090324
  5. VALSARTAN [Suspect]
     Dosage: 160 MG
     Route: 048
     Dates: start: 20091225
  6. AMARYL [Concomitant]
     Dosage: 3 MG
     Route: 048
     Dates: start: 20080626, end: 20090323
  7. NORVASC [Concomitant]
     Indication: HYPERTENSION
     Dosage: 5 MG, UNK
     Route: 048
     Dates: start: 20080626
  8. NORVASC [Concomitant]
     Dosage: 10 MG, UNK
     Route: 048
     Dates: start: 20080626
  9. PLAVIX [Concomitant]
     Dosage: 75 MG, UNK
     Route: 048
     Dates: start: 20080625
  10. RABEPRAZOLE SODIUM [Concomitant]
     Dosage: 10 MG
     Route: 048
     Dates: start: 20080322
  11. ALLOPURINOL [Concomitant]
     Dosage: 100 MG, UNK
     Route: 048
     Dates: start: 20080626
  12. GLUFAST [Concomitant]
     Dosage: 30 MG
     Route: 048
     Dates: start: 20090324
  13. VALSARTAN [Suspect]
     Dosage: 80 MG, QD
     Route: 048
     Dates: start: 20081003, end: 20091224
  14. AMARYL [Concomitant]
     Dosage: 1 MG
     Route: 048
  15. LIPITOR [Concomitant]
     Dosage: 5 MG
     Route: 048
     Dates: start: 20071207

REACTIONS (2)
  - RENAL IMPAIRMENT [None]
  - MYOCARDIAL ISCHAEMIA [None]
